FAERS Safety Report 4786124-8 (Version None)
Quarter: 2005Q3

REPORT INFORMATION
  Report Type: 
  Country: None (occurrence: None)
  Receive Date: 20050930
  Receipt Date: 20050914
  Transmission Date: 20060218
  Serious: Yes (Hospitalization, Other)
  Sender: FDA-Public Use
  Company Number: 2005-01963

PATIENT
  Age: 81 Year
  Sex: Male

DRUGS (4)
  1. VELCADE [Suspect]
     Indication: MULTIPLE MYELOMA
     Dosage: 2.00 MG, 2/WEEK, INTRAVENOUS; 1.00 MG, 2/WEEK, INTRAVENOUS
     Route: 042
     Dates: start: 20050708, end: 20050711
  2. VELCADE [Suspect]
     Indication: MULTIPLE MYELOMA
     Dosage: 2.00 MG, 2/WEEK, INTRAVENOUS; 1.00 MG, 2/WEEK, INTRAVENOUS
     Route: 042
     Dates: start: 20050729, end: 20050801
  3. VELCADE [Suspect]
     Indication: MULTIPLE MYELOMA
     Dosage: 2.00 MG, 2/WEEK, INTRAVENOUS; 1.00 MG, 2/WEEK, INTRAVENOUS
     Route: 042
     Dates: start: 20050826, end: 20050902
  4. DEXAMETHASONE SODIUM PHOSPHATE [Concomitant]

REACTIONS (6)
  - BRADYPHRENIA [None]
  - CONFUSIONAL STATE [None]
  - GAIT DISTURBANCE [None]
  - HYPONATRAEMIA [None]
  - THROMBOCYTOPENIA [None]
  - URINARY INCONTINENCE [None]
